FAERS Safety Report 5660870-6 (Version None)
Quarter: 2008Q1

REPORT INFORMATION
  Report Type: 
  Country: None (occurrence: None)
  Receive Date: 20080311
  Receipt Date: 20080307
  Transmission Date: 20080703
  Serious: Yes (Other)
  Sender: FDA-Public Use
  Company Number: US-ASTRAZENECA-2008UW04693

PATIENT
  Age: 51 Year
  Sex: Female

DRUGS (4)
  1. CRESTOR [Suspect]
     Indication: BLOOD CHOLESTEROL
     Route: 048
  2. HYDROCHLOROT [Concomitant]
  3. FLUOXETINE [Concomitant]
  4. METOPROLOL TARTRATE [Concomitant]
     Route: 048

REACTIONS (1)
  - DEPRESSION [None]
